FAERS Safety Report 5876415-1 (Version None)
Quarter: 2008Q3

REPORT INFORMATION
  Report Type: 
  Country: None (occurrence: None)
  Receive Date: 20080910
  Receipt Date: 20080902
  Transmission Date: 20090109
  Serious: Yes (Hospitalization)
  Sender: FDA-Public Use
  Company Number: FR-BRISTOL-MYERS SQUIBB COMPANY-14222731

PATIENT
  Age: 58 Year
  Sex: Female
  Weight: 75 kg

DRUGS (8)
  1. ERBITUX [Suspect]
     Indication: TONSIL CANCER
     Route: 042
     Dates: start: 20080303, end: 20080407
  2. CARBOPLATIN [Suspect]
     Indication: TONSIL CANCER
     Dosage: DOSE DEPENDS ON CYCLE.
     Route: 042
     Dates: start: 20080225, end: 20080407
  3. RULID [Suspect]
     Route: 048
     Dates: start: 20080414, end: 20080415
  4. SOLUPRED [Concomitant]
     Route: 048
  5. MORPHINE [Concomitant]
     Dosage: 1 DOSAGE FORM = 20MG TAB 3-4TABS/DAY.
     Route: 048
  6. TRIFLUCAN [Concomitant]
     Indication: FUNGAL INFECTION
     Route: 048
  7. ZELITREX [Concomitant]
     Indication: FUNGAL INFECTION
     Route: 048
  8. RADIOTHERAPY [Concomitant]
     Indication: TONSIL CANCER
     Dosage: 1 DOSAGE FORM=20 GRAY.

REACTIONS (1)
  - HEPATITIS TOXIC [None]
